FAERS Safety Report 11001040 (Version 1)
Quarter: 2015Q2

REPORT INFORMATION
  Report Type: Spontaneous
  Country: US (occurrence: US)
  Receive Date: 20150408
  Receipt Date: 20150408
  Transmission Date: 20150821
  Serious: No
  Sender: FDA-Public Use
  Company Number: US-SA-2015SA005196

PATIENT
  Age: 80 Year
  Sex: Female

DRUGS (1)
  1. ALLEGRA [Suspect]
     Active Substance: FEXOFENADINE HYDROCHLORIDE
     Dosage: START DATE: 2 DAYS AGO?DOSE: 2 HALF DOSES OF 180 MG
     Route: 048

REACTIONS (7)
  - Cough [Unknown]
  - Paranasal sinus hypersecretion [Unknown]
  - Upper-airway cough syndrome [Unknown]
  - Malaise [Unknown]
  - Wrong technique in drug usage process [Unknown]
  - Nasopharyngitis [Unknown]
  - Head discomfort [Unknown]
